FAERS Safety Report 5846039-0 (Version None)
Quarter: 2008Q3

REPORT INFORMATION
  Report Type: 
  Country: None (occurrence: None)
  Receive Date: 20080814
  Receipt Date: 20080807
  Transmission Date: 20090109
  Serious: Yes (Life-Threatening, Hospitalization, Other)
  Sender: FDA-Public Use
  Company Number: JP-PFIZER INC-2008028837

PATIENT
  Sex: Female
  Weight: 48 kg

DRUGS (7)
  1. NORVASC [Suspect]
     Indication: HYPERTENSION
     Route: 048
     Dates: start: 20070811, end: 20080318
  2. NORVASC [Suspect]
     Route: 048
  3. OLMESARTAN MEDOXOMIL [Suspect]
     Indication: HYPERTENSION
     Route: 048
     Dates: start: 20070811, end: 20080311
  4. ASPIRIN [Suspect]
     Indication: CAROTID ARTERIOSCLEROSIS
     Route: 048
     Dates: start: 20070811, end: 20080311
  5. RULID [Suspect]
     Route: 048
  6. SELBEX [Concomitant]
     Route: 048
  7. GLYCYRON [Concomitant]
     Route: 048

REACTIONS (3)
  - INTERSTITIAL LUNG DISEASE [None]
  - RASH ERYTHEMATOUS [None]
  - THROMBOCYTOPENIC PURPURA [None]
